FAERS Safety Report 6512374-6 (Version None)
Quarter: 2009Q4

REPORT INFORMATION
  Report Type: 
  Country: None (occurrence: None)
  Receive Date: 20091222
  Receipt Date: 20091216
  Transmission Date: 20100525
  Serious: Yes (Other)
  Sender: FDA-Public Use
  Company Number: CN-PFIZER INC-2009310700

PATIENT
  Age: 60 Year

DRUGS (2)
  1. CELEBREX [Suspect]
     Route: 048
  2. ACETYLSALICYLIC ACID [Suspect]
     Dosage: 400 MG, UNK

REACTIONS (3)
  - BLOOD PRESSURE IMMEASURABLE [None]
  - CYANOSIS [None]
  - HYPERHIDROSIS [None]
